FAERS Safety Report 4756687-7 (Version None)
Quarter: 2005Q3

REPORT INFORMATION
  Report Type: 
  Country: None (occurrence: None)
  Receive Date: 20050830
  Receipt Date: 20050824
  Transmission Date: 20060218
  Serious: Yes (Hospitalization)
  Sender: FDA-Public Use
  Company Number: DE-GLAXOSMITHKLINE-D0047369A

PATIENT

DRUGS (2)
  1. FLUTIDE [Suspect]
     Indication: ASTHMA
     Route: 065
  2. VIANI [Suspect]
     Indication: ASTHMA
     Dosage: 300MCG TWICE PER DAY
     Route: 055
     Dates: start: 20040101

REACTIONS (4)
  - DIZZINESS [None]
  - HYPOKALAEMIA [None]
  - MUSCLE SPASMS [None]
  - TACHYCARDIA [None]
